FAERS Safety Report 13151715 (Version 1)
Quarter: 2017Q1

REPORT INFORMATION
  Report Type: Spontaneous
  Country: US (occurrence: US)
  Receive Date: 20170125
  Receipt Date: 20170125
  Transmission Date: 20170428
  Serious: No
  Sender: FDA-Public Use
  Company Number: US-MALLINCKRODT-T201600664

PATIENT
  Age: 76 Year
  Sex: Female
  Weight: 84 kg

DRUGS (6)
  1. KLONOPIN [Concomitant]
     Active Substance: CLONAZEPAM
  2. ANAFRANIL [Suspect]
     Active Substance: CLOMIPRAMINE HYDROCHLORIDE
     Indication: OBSESSIVE-COMPULSIVE DISORDER
     Dosage: 1 DF TID
     Route: 048
  3. ANAFRANIL [Suspect]
     Active Substance: CLOMIPRAMINE HYDROCHLORIDE
     Dosage: 1 DF BID
     Route: 048
  4. ANAFRANIL [Suspect]
     Active Substance: CLOMIPRAMINE HYDROCHLORIDE
     Dosage: 1 DF QD
     Route: 048
     Dates: start: 20160107
  5. LATUDA [Suspect]
     Active Substance: LURASIDONE HYDROCHLORIDE
     Dosage: 40 MG, QHS
     Route: 048
     Dates: start: 20160107
  6. LATUDA [Suspect]
     Active Substance: LURASIDONE HYDROCHLORIDE
     Indication: DEPRESSION
     Dosage: 20 MG, QD
     Route: 048
     Dates: start: 201510, end: 20160106

REACTIONS (5)
  - Discomfort [Unknown]
  - Hypoaesthesia [Recovering/Resolving]
  - Fatigue [Recovering/Resolving]
  - Cognitive disorder [Recovering/Resolving]
  - Joint swelling [Recovered/Resolved]

NARRATIVE: CASE EVENT DATE: 2016
